FAERS Safety Report 8592184-9 (Version None)
Quarter: 2012Q3

REPORT INFORMATION
  Report Type: 
  Country: None (occurrence: None)
  Receive Date: 20120814
  Receipt Date: 20120803
  Transmission Date: 20120928
  Serious: Yes (Hospitalization)
  Sender: FDA-Public Use
  Company Number: NL-AMGEN-NLDSP2012050390

PATIENT
  Age: 65 Year
  Sex: Female

DRUGS (3)
  1. VOLTAREN [Concomitant]
     Dosage: UNK
  2. CALCIUM CARBONATE [Concomitant]
     Dosage: UNK
  3. ENBREL [Suspect]
     Indication: RHEUMATOID ARTHRITIS
     Dosage: 50 MG, WEEKLY
     Dates: start: 20100101

REACTIONS (1)
  - KNEE ARTHROPLASTY [None]
